FAERS Safety Report 6504348-6 (Version None)
Quarter: 2009Q4

REPORT INFORMATION
  Report Type: 
  Country: None (occurrence: None)
  Receive Date: 20091217
  Receipt Date: 20091209
  Transmission Date: 20100525
  Serious: Yes (Other)
  Sender: FDA-Public Use
  Company Number: GB-ELI_LILLY_AND_COMPANY-GB200912002723

PATIENT
  Sex: Male

DRUGS (5)
  1. BYETTA [Suspect]
     Dosage: 5 UG, UNKNOWN
     Route: 065
     Dates: start: 20090601, end: 20090601
  2. BYETTA [Suspect]
     Dosage: 10 UG, UNKNOWN
     Route: 065
     Dates: start: 20090601, end: 20091201
  3. METFORMIN HCL [Concomitant]
     Dosage: UNK, UNKNOWN
     Route: 065
  4. ORLISTAT [Concomitant]
     Dosage: UNK, UNKNOWN
     Route: 065
  5. PIOGLITAZONE [Concomitant]
     Dosage: UNK, UNKNOWN
     Route: 065
     Dates: end: 20090101

REACTIONS (1)
  - LIVER FUNCTION TEST ABNORMAL [None]
